FAERS Safety Report 9626468 (Version 1)
Quarter: 2013Q4

REPORT INFORMATION
  Report Type: Spontaneous
  Country: US (occurrence: None)
  Receive Date: 20131015
  Receipt Date: 20131015
  Transmission Date: 20140711
  Serious: Yes (Other)
  Sender: FDA-Public Use
  Company Number: None

PATIENT
  Age: 42 Year
  Sex: Female
  Weight: 62.6 kg

DRUGS (2)
  1. METROPOLOL [Suspect]
     Route: 048
     Dates: start: 20100901, end: 20101101
  2. BYSTOLIC [Suspect]
     Indication: CORONARY ARTERY BYPASS
     Route: 048
     Dates: start: 20130306, end: 20130918

REACTIONS (12)
  - Sleep terror [None]
  - Sleep disorder [None]
  - Hallucination [None]
  - Memory impairment [None]
  - Disorientation [None]
  - Psychotic behaviour [None]
  - Affective disorder [None]
  - Impaired work ability [None]
  - Family stress [None]
  - Social problem [None]
  - Impaired driving ability [None]
  - Nervous system disorder [None]
